FAERS Safety Report 15279383 (Version 2)
Quarter: 2018Q4

REPORT INFORMATION
  Report Type: Report from Study
  Country: DE (occurrence: DE)
  Receive Date: 20180815
  Receipt Date: 20181003
  Transmission Date: 20190204
  Serious: Yes (Death, Life-Threatening, Hospitalization)
  Sender: FDA-Public Use
  Company Number: DE-BAXTER-2018BAX021206

PATIENT
  Age: 70 Year
  Sex: Female
  Weight: 60 kg

DRUGS (16)
  1. PACLITAXEL. [Suspect]
     Active Substance: PACLITAXEL
     Dosage: 175 MG/M2 MILLIGRAM(S)/SQ. METER EVERY 3 WEEK
     Route: 042
     Dates: start: 20130918, end: 20130918
  2. AVASTIN [Suspect]
     Active Substance: BEVACIZUMAB
     Indication: OVARIAN CANCER
     Route: 042
     Dates: start: 20130828, end: 20130828
  3. AVASTIN [Suspect]
     Active Substance: BEVACIZUMAB
     Dosage: DOSE: 1 (UNITS NOT REPORTED)
     Route: 042
  4. PANTOPRAZOL [Concomitant]
     Active Substance: PANTOPRAZOLE SODIUM
     Indication: PRODUCT USED FOR UNKNOWN INDICATION
     Route: 048
     Dates: start: 2013
  5. CARBOPLATIN. [Suspect]
     Active Substance: CARBOPLATIN
     Route: 042
     Dates: start: 20130918, end: 20130918
  6. PACLITAXEL. [Suspect]
     Active Substance: PACLITAXEL
     Indication: PRODUCT USED FOR UNKNOWN INDICATION
     Dosage: 275 MG-278MG (175 MG/M2 MILLIGRAM(S)/SQ. METER EVERY 21 DAY)
     Route: 042
     Dates: start: 20130807, end: 20130807
  7. METOPROLOL. [Concomitant]
     Active Substance: METOPROLOL
     Indication: HYPERTENSION
     Route: 048
     Dates: start: 201306
  8. CARBOPLATIN. [Suspect]
     Active Substance: CARBOPLATIN
     Indication: PRODUCT USED FOR UNKNOWN INDICATION
     Dosage: 465 MG MILLIGRAM(S) EVERY 21 DAY
     Route: 042
     Dates: start: 20130807, end: 20130807
  9. AVASTIN [Suspect]
     Active Substance: BEVACIZUMAB
     Dosage: 15 MG/KG MILLIGRAM(S)/KILOGRAM EVERY 21 DAY
     Route: 042
     Dates: start: 20130918, end: 20130918
  10. CARBOPLATIN. [Suspect]
     Active Substance: CARBOPLATIN
     Indication: OVARIAN CANCER
     Route: 042
     Dates: start: 20130828, end: 20130828
  11. ROCEPHIN [Suspect]
     Active Substance: CEFTRIAXONE SODIUM
     Indication: PRODUCT USED FOR UNKNOWN INDICATION
     Route: 065
  12. FELODIPIN [Concomitant]
     Active Substance: FELODIPINE
     Indication: PRODUCT USED FOR UNKNOWN INDICATION
     Route: 048
  13. METRONIDAZOL-INFUSIONSL?SUNG 0,5 % BAXTER [Suspect]
     Active Substance: METRONIDAZOLE
     Indication: PRODUCT USED FOR UNKNOWN INDICATION
     Route: 065
  14. PACLITAXEL. [Suspect]
     Active Substance: PACLITAXEL
     Dosage: 278 MG MILLIGRAM(S) EVERY 21 DAY
     Route: 042
     Dates: start: 20130807, end: 20130807
  15. PACLITAXEL. [Suspect]
     Active Substance: PACLITAXEL
     Indication: OVARIAN CANCER
     Dosage: 275 MG-278MG
     Route: 042
     Dates: start: 20130828, end: 20130828
  16. AVASTIN [Suspect]
     Active Substance: BEVACIZUMAB
     Indication: PRODUCT USED FOR UNKNOWN INDICATION
     Route: 042
     Dates: start: 20130918, end: 20130918

REACTIONS (8)
  - Multiple organ dysfunction syndrome [Fatal]
  - Tremor [Not Recovered/Not Resolved]
  - Haemoglobin decreased [Recovered/Resolved]
  - Fatigue [Not Recovered/Not Resolved]
  - Tachycardia [Recovered/Resolved]
  - Acute kidney injury [Fatal]
  - General physical health deterioration [Not Recovered/Not Resolved]
  - Urosepsis [Fatal]

NARRATIVE: CASE EVENT DATE: 20130626
